FAERS Safety Report 22334359 (Version 3)
Quarter: 2023Q2

REPORT INFORMATION
  Report Type: Spontaneous
  Country: US (occurrence: US)
  Receive Date: 20230517
  Receipt Date: 20230613
  Transmission Date: 20230721
  Serious: No
  Sender: FDA-Public Use
  Company Number: US-BAUSCHBL-2023BNL004061

PATIENT
  Sex: Female

DRUGS (2)
  1. ZIRGAN [Suspect]
     Active Substance: GANCICLOVIR
     Indication: Postoperative care
     Route: 047
  2. VALACYCLOVIR [Suspect]
     Active Substance: VALACYCLOVIR HYDROCHLORIDE
     Indication: Postoperative care
     Route: 048

REACTIONS (2)
  - Anxiety [Recovered/Resolved]
  - Product packaging quantity issue [Unknown]
